FAERS Safety Report 13167713 (Version 3)
Quarter: 2017Q4

REPORT INFORMATION
  Report Type: Spontaneous
  Country: JP (occurrence: JP)
  Receive Date: 20170131
  Receipt Date: 20171228
  Transmission Date: 20180320
  Serious: Yes (Hospitalization, Other)
  Sender: FDA-Public Use
  Company Number: JP-ELI_LILLY_AND_COMPANY-JP201701010978

PATIENT
  Age: 74 Year
  Sex: Female

DRUGS (4)
  1. LYRICA [Concomitant]
     Active Substance: PREGABALIN
     Indication: PRODUCT USED FOR UNKNOWN INDICATION
     Dosage: UNK UNK, UNKNOWN
     Route: 065
  2. HEPARINOIDE [Concomitant]
     Indication: PROPHYLAXIS
     Dosage: UNK, UNKNOWN
     Route: 061
  3. ERBITUX [Suspect]
     Active Substance: CETUXIMAB
     Indication: COLON CANCER
     Dosage: UNK UNK, ONCE IN TWO WEEKS
     Route: 042
     Dates: start: 2016, end: 20170110
  4. FENTOS [Concomitant]
     Active Substance: FENTANYL
     Indication: PRODUCT USED FOR UNKNOWN INDICATION
     Dosage: UNK UNK, UNKNOWN
     Route: 065

REACTIONS (5)
  - Epidermal necrosis [Recovered/Resolved]
  - Purpura [Recovered/Resolved]
  - Off label use [Unknown]
  - Paronychia [Recovered/Resolved]
  - Rash maculo-papular [Recovered/Resolved]

NARRATIVE: CASE EVENT DATE: 201611
